FAERS Safety Report 23551866 (Version 1)
Quarter: 2024Q1

REPORT INFORMATION
  Report Type: Spontaneous
  Country: US (occurrence: US)
  Receive Date: 20240222
  Receipt Date: 20240222
  Transmission Date: 20240409
  Serious: Yes (Other)
  Sender: FDA-Public Use
  Company Number: US-STRIDES ARCOLAB LIMITED-2023SP018882

PATIENT
  Age: 54 Year
  Sex: Male

DRUGS (10)
  1. ETOPOSIDE [Suspect]
     Active Substance: ETOPOSIDE
     Indication: Adrenocortical carcinoma
     Dosage: UNK
     Route: 065
  2. ETOPOSIDE [Suspect]
     Active Substance: ETOPOSIDE
     Indication: Adenocarcinoma metastatic
  3. CISPLATIN [Suspect]
     Active Substance: CISPLATIN
     Indication: Adrenocortical carcinoma
     Dosage: UNK
     Route: 065
  4. CISPLATIN [Suspect]
     Active Substance: CISPLATIN
     Indication: Adenocarcinoma metastatic
  5. MITOTANE [Suspect]
     Active Substance: MITOTANE
     Indication: Adrenocortical carcinoma
     Dosage: UNK
     Route: 065
  6. MITOTANE [Suspect]
     Active Substance: MITOTANE
     Indication: Adenocarcinoma metastatic
  7. ABRAXANE [Suspect]
     Active Substance: PACLITAXEL
     Indication: Adrenocortical carcinoma
     Dosage: UNK
     Route: 065
  8. ABRAXANE [Suspect]
     Active Substance: PACLITAXEL
     Indication: Adenocarcinoma metastatic
  9. GEMCITABINE [Suspect]
     Active Substance: GEMCITABINE
     Indication: Adrenocortical carcinoma
     Dosage: UNK
     Route: 065
  10. GEMCITABINE [Suspect]
     Active Substance: GEMCITABINE
     Indication: Adenocarcinoma metastatic

REACTIONS (2)
  - Treatment failure [Unknown]
  - Off label use [Unknown]
